FAERS Safety Report 10017929 (Version 1)
Quarter: 2014Q1

REPORT INFORMATION
  Report Type: Spontaneous
  Country: PL (occurrence: PL)
  Receive Date: 20140318
  Receipt Date: 20140318
  Transmission Date: 20141002
  Serious: Yes (Death, Other)
  Sender: FDA-Public Use
  Company Number: 2014SP001363

PATIENT
  Age: 19 Year
  Sex: Male

DRUGS (5)
  1. RIFAMPICIN [Suspect]
     Indication: PRODUCT USED FOR UNKNOWN INDICATION
  2. ISONIAZIDE [Suspect]
  3. PYRAZINAMIDE [Suspect]
  4. KETOPROFEN [Suspect]
  5. ALCOHOL [Suspect]

REACTIONS (8)
  - Cardiogenic shock [Fatal]
  - Pulmonary oedema [Fatal]
  - Overdose [Fatal]
  - Acute coronary syndrome [Unknown]
  - Chest pain [Unknown]
  - Dyspnoea [Unknown]
  - Red man syndrome [Unknown]
  - Pruritus [Unknown]
